FAERS Safety Report 4354288-6 (Version None)
Quarter: 2004Q2

REPORT INFORMATION
  Report Type: 
  Country: None (occurrence: None)
  Receive Date: 20040503
  Receipt Date: 20040426
  Transmission Date: 20050107
  Serious: Yes (Hospitalization)
  Sender: FDA-Public Use
  Company Number: 2004UW08428

PATIENT
  Age: 62 Year
  Sex: Female
  Weight: 87.0906 kg

DRUGS (5)
  1. SEROQUEL [Suspect]
     Indication: ANXIETY
     Dosage: 25 MG PLUS 1.4 OF A 25 MG
     Dates: start: 20040301
  2. SEROQUEL [Suspect]
     Indication: DEPRESSION
     Dosage: 25 MG PLUS 1.4 OF A 25 MG
     Dates: start: 20040301
  3. ATIVAN [Concomitant]
  4. SYNTHROID [Concomitant]
  5. CELEXA [Concomitant]

REACTIONS (2)
  - DIAPHRAGMATIC DISORDER [None]
  - DISCOMFORT [None]
